FAERS Safety Report 6177433-9 (Version None)
Quarter: 2009Q2

REPORT INFORMATION
  Report Type: 
  Country: None (occurrence: None)
  Receive Date: 20090501
  Receipt Date: 20090501
  Transmission Date: 20091009
  Serious: Yes (Life-Threatening, Hospitalization)
  Sender: FDA-Public Use
  Company Number: None

PATIENT
  Age: 52 Year
  Sex: Male
  Weight: 95.3 kg

DRUGS (5)
  1. WARFARIN SODIUM [Suspect]
     Indication: DEEP VEIN THROMBOSIS
     Dosage: 4MG PO DAILY
     Route: 048
  2. CLOPIDOGREL [Concomitant]
  3. ASPIRIN [Concomitant]
  4. LISINOPRIL [Concomitant]
  5. PERCOCET [Concomitant]

REACTIONS (5)
  - HAEMOPTYSIS [None]
  - HAEMORRHAGE [None]
  - INTERNATIONAL NORMALISED RATIO INCREASED [None]
  - PNEUMONIA [None]
  - TUBERCULOSIS [None]
